FAERS Safety Report 7951758-6 (Version None)
Quarter: 2011Q4

REPORT INFORMATION
  Report Type: 
  Country: None (occurrence: None)
  Receive Date: 20111201
  Receipt Date: 20111125
  Transmission Date: 20120403
  Serious: Yes (Hospitalization, Other)
  Sender: FDA-Public Use
  Company Number: US-JNJFOC-20110807655

PATIENT
  Sex: Female

DRUGS (29)
  1. AVAPRO [Suspect]
     Indication: HYPERTENSION
     Route: 065
  2. NORVASC [Suspect]
     Route: 048
     Dates: start: 20100101
  3. NORVASC [Suspect]
     Route: 048
     Dates: start: 19970101
  4. FUROSEMIDE [Suspect]
     Indication: PRODUCT USED FOR UNKNOWN INDICATION
     Route: 065
  5. NORVASC [Suspect]
     Indication: HYPERTENSION
     Dosage: 5MG IN HALF
     Route: 048
  6. NORVASC [Suspect]
     Route: 048
     Dates: start: 19950101
  7. LIDOCAINE [Suspect]
     Indication: INGROWING NAIL
     Route: 065
     Dates: start: 20100513, end: 20100513
  8. BENICAR [Suspect]
     Indication: HYPERTENSION
     Route: 048
     Dates: start: 20070101
  9. NORVASC [Suspect]
     Dosage: 5MG IN HALF
     Route: 048
     Dates: start: 20100722
  10. LISINOPRIL [Suspect]
     Indication: PRODUCT USED FOR UNKNOWN INDICATION
     Route: 065
  11. XANAX [Suspect]
     Indication: PRODUCT USED FOR UNKNOWN INDICATION
     Dosage: 0.5 (UNITS UNSPECIFIED)
     Route: 065
  12. BACTRIM [Suspect]
     Indication: PRODUCT USED FOR UNKNOWN INDICATION
     Route: 065
  13. DIOVAN [Suspect]
     Indication: PRODUCT USED FOR UNKNOWN INDICATION
     Route: 065
  14. LEVOTHYROXINE SODIUM [Concomitant]
     Route: 065
  15. BYSTOLIC [Suspect]
     Indication: PRODUCT USED FOR UNKNOWN INDICATION
     Route: 065
  16. CIPROFLOXACIN [Suspect]
     Indication: PRODUCT USED FOR UNKNOWN INDICATION
     Route: 065
  17. REGLAN [Suspect]
     Indication: PRODUCT USED FOR UNKNOWN INDICATION
     Route: 065
  18. ATACAND [Suspect]
     Route: 065
  19. HYDROCHLOROTHIAZIDE [Suspect]
     Indication: PRODUCT USED FOR UNKNOWN INDICATION
     Route: 065
  20. MACROBID [Suspect]
     Indication: PRODUCT USED FOR UNKNOWN INDICATION
     Route: 065
  21. ATACAND [Suspect]
     Indication: PRODUCT USED FOR UNKNOWN INDICATION
     Route: 065
  22. LEVAQUIN [Suspect]
     Indication: PRODUCT USED FOR UNKNOWN INDICATION
     Route: 065
  23. NORVASC [Suspect]
     Route: 048
     Dates: start: 20100719, end: 20100721
  24. LIDOCAINE [Suspect]
     Indication: ANAESTHESIA
     Route: 065
     Dates: start: 20100513, end: 20100513
  25. CLONIDINE [Concomitant]
     Route: 065
  26. DEPAKOTE [Suspect]
     Indication: CONVULSION
     Route: 065
     Dates: start: 19960101
  27. DILANTIN [Suspect]
     Indication: PRODUCT USED FOR UNKNOWN INDICATION
     Route: 065
     Dates: start: 19960101
  28. LOSARTAN POTASSIUM [Suspect]
     Indication: PRODUCT USED FOR UNKNOWN INDICATION
     Route: 065
  29. CARDIZEM [Suspect]
     Indication: PRODUCT USED FOR UNKNOWN INDICATION
     Route: 065

REACTIONS (12)
  - LOSS OF CONSCIOUSNESS [None]
  - BLOOD COUNT ABNORMAL [None]
  - ARTERIOSCLEROSIS CORONARY ARTERY [None]
  - ABDOMINAL DISTENSION [None]
  - WEIGHT DECREASED [None]
  - CHOLECYSTECTOMY [None]
  - BLOOD PRESSURE INCREASED [None]
  - BURNING SENSATION [None]
  - CYSTITIS [None]
  - TOE OPERATION [None]
  - INGROWING NAIL [None]
  - PALPITATIONS [None]
